FAERS Safety Report 8151003-5 (Version None)
Quarter: 2012Q1

REPORT INFORMATION
  Report Type: 
  Country: None (occurrence: None)
  Receive Date: 20120220
  Receipt Date: 20120214
  Transmission Date: 20120608
  Serious: Yes (Death)
  Sender: FDA-Public Use
  Company Number: US-BRISTOL-MYERS SQUIBB COMPANY-16365520

PATIENT
  Age: 28 Year
  Sex: Male
  Weight: 44 kg

DRUGS (21)
  1. CISPLATIN [Suspect]
     Indication: HEAD AND NECK CANCER
     Dosage: TAKEN ON D1
     Route: 042
     Dates: start: 20120116, end: 20120116
  2. APREPITANT [Concomitant]
     Indication: ANTIEMETIC SUPPORTIVE CARE
     Dates: start: 20120117
  3. CLONAZEPAM [Concomitant]
     Indication: ANXIETY
     Dates: start: 20110127
  4. FENTANYL [Concomitant]
     Dates: start: 20111229
  5. PALONOSETRON [Concomitant]
     Dates: start: 20120116
  6. FLUOROURACIL [Suspect]
     Indication: HEAD AND NECK CANCER
     Dosage: TAKEN ON D1-4
     Route: 042
     Dates: start: 20120116, end: 20120116
  7. ONDANSETRON [Concomitant]
     Dates: start: 20120118
  8. PROCHLORPERAZINE [Concomitant]
     Dates: start: 20120116
  9. OXYCODONE HCL [Concomitant]
     Dates: start: 20120116
  10. BENADRYL [Concomitant]
     Dates: start: 20120116
  11. CETUXIMAB [Suspect]
     Indication: HEAD AND NECK CANCER
     Route: 042
     Dates: start: 20120116, end: 20120116
  12. FOSAPREPITANT [Concomitant]
     Dates: start: 20120116
  13. SODIUM CHLORIDE [Concomitant]
     Dates: start: 20120116
  14. AMITRIPTYLINE HCL [Concomitant]
     Indication: DEPRESSION
     Dates: start: 20120109
  15. CHLORHEXIDINE GLUCONATE [Concomitant]
     Indication: ORAL CANDIDIASIS
     Dates: start: 20111025
  16. DEXAMETHASONE [Concomitant]
     Dates: start: 20120117
  17. FERROUS FUMARATE [Concomitant]
     Dates: start: 20111201
  18. FLUCONAZOLE [Concomitant]
     Indication: ORAL CANDIDIASIS
     Dates: start: 20120120
  19. SENNOSIDE [Concomitant]
     Dates: start: 20120116
  20. CIPROFLOXACIN [Concomitant]
     Indication: ORAL CANDIDIASIS
     Dates: start: 20120120
  21. NICODERM CQ [Concomitant]
     Dates: start: 20111015

REACTIONS (1)
  - CARDIAC ARREST [None]
